FAERS Safety Report 4451982-3 (Version None)
Quarter: 2004Q3

REPORT INFORMATION
  Report Type: 
  Country: None (occurrence: None)
  Receive Date: 20040915
  Receipt Date: 20040915
  Transmission Date: 20050211
  Serious: Yes (Hospitalization)
  Sender: FDA-Public Use
  Company Number: None

PATIENT
  Age: 83 Year
  Sex: Male
  Weight: 80.2867 kg

DRUGS (15)
  1. IMIPENEM [Suspect]
     Indication: BACTERAEMIA
     Dosage: 500 MG IV Q 12 H
     Route: 042
     Dates: start: 20040513, end: 20040515
  2. ALLOPURINOL [Concomitant]
  3. ASPIRIN [Concomitant]
  4. DETROL LA [Concomitant]
  5. DIGOXIN [Concomitant]
  6. FLOMAX [Concomitant]
  7. RYTHMAL [Concomitant]
  8. REMINYL [Concomitant]
  9. AMARYL [Concomitant]
  10. GLUCOPHAGE [Concomitant]
  11. MULTI-VITAMIN [Concomitant]
  12. LASIX [Concomitant]
  13. HALDOL [Concomitant]
  14. MORPHINE [Concomitant]
  15. NEOSYNEPHRINE [Concomitant]

REACTIONS (2)
  - AGRANULOCYTOSIS [None]
  - HYPERSENSITIVITY [None]
